FAERS Safety Report 4847174-6 (Version None)
Quarter: 2005Q4

REPORT INFORMATION
  Report Type: 
  Country: None (occurrence: None)
  Receive Date: 20051207
  Receipt Date: 20051109
  Transmission Date: 20060501
  Serious: No
  Sender: FDA-Public Use
  Company Number: JP-MERCK-0511USA01939

PATIENT
  Age: 79 Year
  Sex: Male

DRUGS (14)
  1. PRIMAXIN [Suspect]
     Indication: PNEUMONIA
     Route: 042
     Dates: start: 20050106, end: 20050118
  2. PEPCID [Suspect]
     Route: 051
     Dates: start: 20050106, end: 20050112
  3. MICAFUNGIN SODIUM [Suspect]
     Indication: CANDIDA PNEUMONIA
     Route: 042
     Dates: start: 20050106, end: 20050121
  4. MINOCYCLINE HCL [Suspect]
     Indication: PNEUMONIA
     Route: 042
     Dates: start: 20050106, end: 20050118
  5. SOLU-MEDROL [Suspect]
     Route: 042
     Dates: start: 20050107, end: 20050109
  6. SOLU-MEDROL [Suspect]
     Route: 042
     Dates: start: 20050110, end: 20050112
  7. LANIRAPID [Suspect]
     Route: 048
  8. LASIX [Suspect]
     Route: 048
  9. FLIVAS [Suspect]
     Route: 048
  10. BETHANECHOL CHLORIDE [Suspect]
     Route: 048
  11. TORSEMIDE [Suspect]
     Route: 048
  12. MUCODYNE [Suspect]
     Route: 048
  13. DASEN [Suspect]
     Route: 048
  14. KLARICID [Suspect]
     Route: 048

REACTIONS (2)
  - GAMMA-GLUTAMYLTRANSFERASE INCREASED [None]
  - HEPATIC FUNCTION ABNORMAL [None]
